FAERS Safety Report 8892228 (Version 1)
Quarter: 2012Q4

REPORT INFORMATION
  Report Type: 
  Country: US (occurrence: US)
  Receive Date: 20121107
  Receipt Date: 20121107
  Transmission Date: 20130627
  Serious: No
  Sender: FDA-Public Use
  Company Number: US-AMGEN-USASP2011055482

PATIENT
  Age: 62 Year
  Sex: Female
  Weight: 90.7 kg

DRUGS (7)
  1. ENBREL [Suspect]
     Indication: PRODUCT USED FOR UNKNOWN INDICATION
     Dosage: 25 mg, qwk
     Route: 058
  2. PANTOPRAZOLE [Concomitant]
     Dosage: 20 mg, UNK
  3. RELISTOR [Concomitant]
  4. MELOXICAM [Concomitant]
     Dosage: 15 mg, UNK
  5. SUDAFED PE [Concomitant]
     Dosage: UNK
  6. METHOTREXATE [Concomitant]
     Dosage: 1 g, UNK
  7. ACTANOL [Concomitant]

REACTIONS (1)
  - Sinus disorder [Unknown]
